FAERS Safety Report 9062068 (Version 1)
Quarter: 2013Q1

REPORT INFORMATION
  Report Type: Spontaneous
  Country: BR (occurrence: BR)
  Receive Date: 20130204
  Receipt Date: 20130204
  Transmission Date: 20140127
  Serious: Yes (Other)
  Sender: FDA-Public Use
  Company Number: PHHY2013BR007749

PATIENT
  Age: 41 Year
  Sex: Female

DRUGS (7)
  1. CICLOSPORIN [Suspect]
     Indication: RENAL TRANSPLANT
     Dosage: 250 MG, QD
  2. AZATHIOPRINE [Suspect]
     Dosage: 100 MG, QD
  3. FERROUS SULPHATE [Suspect]
     Dosage: 120 MG, QD
  4. METHYLDOPA [Suspect]
     Dosage: 1 G, QD
  5. HYDROCHLOROTHIAZIDE [Suspect]
     Dosage: 12.5 MG, QD
  6. ENALAPRIL [Suspect]
     Dosage: 40 MG, QD
  7. LEVOTHYROXINE [Suspect]
     Dosage: 125 UG, QD

REACTIONS (10)
  - Escherichia infection [Unknown]
  - Uterine hypotonus [Unknown]
  - Foetal growth restriction [Unknown]
  - Premature delivery [Unknown]
  - Blood pressure increased [Unknown]
  - Anaemia [Unknown]
  - Foetal exposure timing unspecified [Unknown]
  - Pregnancy [None]
  - Escherichia urinary tract infection [None]
  - Maternal exposure during pregnancy [None]
